FAERS Safety Report 8428131-X (Version None)
Quarter: 2012Q2

REPORT INFORMATION
  Report Type: 
  Country: None (occurrence: None)
  Receive Date: 20120611
  Receipt Date: 20120601
  Transmission Date: 20120825
  Serious: Yes (Other)
  Sender: FDA-Public Use
  Company Number: US-ASTRAZENECA-2011SE09108

PATIENT
  Age: 49 Year
  Sex: Male

DRUGS (2)
  1. SEROQUEL [Suspect]
     Route: 048
  2. SEROQUEL [Suspect]
     Route: 048

REACTIONS (9)
  - SUICIDAL IDEATION [None]
  - FLASHBACK [None]
  - DRUG DOSE OMISSION [None]
  - BIPOLAR DISORDER [None]
  - NERVOUS SYSTEM DISORDER [None]
  - CONFUSIONAL STATE [None]
  - FEELING ABNORMAL [None]
  - INSOMNIA [None]
  - DIZZINESS [None]
